FAERS Safety Report 8468296 (Version 2)
Quarter: 2012Q4

REPORT INFORMATION
  Report Type: Report from Study
  Country: FR (occurrence: FR)
  Receive Date: 20120320
  Receipt Date: 20120903
  Transmission Date: 20130627
  Serious: Yes (Death, Other)
  Sender: FDA-Public Use
  Company Number: PHHY2012FR023256

PATIENT

DRUGS (1)
  1. EVEROLIMUS [Suspect]
     Dosage: UNK UKN, UNK
     Dates: end: 20110320

REACTIONS (6)
  - Neoplasm progression [Fatal]
  - Malignant neoplasm progression [Fatal]
  - Lung disorder [Recovering/Resolving]
  - Pleural effusion [Recovering/Resolving]
  - Cough [Recovering/Resolving]
  - Dyspnoea [Recovering/Resolving]
